FAERS Safety Report 17933531 (Version 1)
Quarter: 2020Q2

REPORT INFORMATION
  Report Type: Spontaneous
  Country: FI (occurrence: FI)
  Receive Date: 20200623
  Receipt Date: 20200623
  Transmission Date: 20200714
  Serious: Yes (Disabling)
  Sender: FDA-Public Use
  Company Number: FI-PFIZER INC-2020240587

PATIENT
  Age: 42 Year
  Sex: Male

DRUGS (5)
  1. PANADOL FORTE [Concomitant]
     Dosage: UNK UNK, AS NEEDED
     Route: 048
     Dates: start: 20200101, end: 20200410
  2. BURANA [Concomitant]
     Active Substance: IBUPROFEN
     Dosage: UNK, AS NEEDED
     Route: 048
     Dates: start: 20200101, end: 20200410
  3. LYRICA [Suspect]
     Active Substance: PREGABALIN
     Indication: NEURALGIA
     Dosage: 300 MG, DAILY
     Route: 048
     Dates: start: 20200102, end: 20200410
  4. OLMETEC [Concomitant]
     Active Substance: OLMESARTAN MEDOXOMIL
     Dosage: 20 MG, DAILY
     Route: 048
     Dates: start: 20170401
  5. ZANIDIP [Concomitant]
     Active Substance: LERCANIDIPINE HYDROCHLORIDE
     Dosage: 20 MG, DAILY
     Route: 048
     Dates: start: 20190901

REACTIONS (2)
  - Blood testosterone decreased [Recovered/Resolved with Sequelae]
  - Gynaecomastia [Recovered/Resolved with Sequelae]

NARRATIVE: CASE EVENT DATE: 20200410
